FAERS Safety Report 22383788 (Version 2)
Quarter: 2023Q2

REPORT INFORMATION
  Report Type: Report from Study
  Country: AU (occurrence: AU)
  Receive Date: 20230530
  Receipt Date: 20230629
  Transmission Date: 20230722
  Serious: Yes (Other)
  Sender: FDA-Public Use
  Company Number: AU-002147023-NVSC2023AU113643

PATIENT

DRUGS (26)
  1. RUXOLITINIB [Suspect]
     Active Substance: RUXOLITINIB
     Indication: Haemophagocytic lymphohistiocytosis
     Dosage: 5 MG
     Route: 048
  2. RUXOLITINIB [Suspect]
     Active Substance: RUXOLITINIB
     Indication: T-cell lymphoma
     Dosage: 15 MG, BID (APPROVED FOR 4 WEEKS ONLY)
     Route: 048
     Dates: start: 20230426
  3. ETOPOSIDE [Suspect]
     Active Substance: ETOPOSIDE
     Indication: Haemophagocytic lymphohistiocytosis
     Dosage: UNK
     Route: 042
  4. ETOPOSIDE [Suspect]
     Active Substance: ETOPOSIDE
     Indication: T-cell lymphoma
  5. DEXAMETHASONE [Suspect]
     Active Substance: DEXAMETHASONE
     Indication: Haemophagocytic lymphohistiocytosis
     Dosage: UNK
     Route: 048
  6. DEXAMETHASONE [Suspect]
     Active Substance: DEXAMETHASONE
     Indication: T-cell lymphoma
  7. AZACITIDINE [Suspect]
     Active Substance: AZACITIDINE
     Indication: Haemophagocytic lymphohistiocytosis
     Dosage: UNK
     Route: 058
  8. AZACITIDINE [Suspect]
     Active Substance: AZACITIDINE
     Indication: T-cell lymphoma
  9. DOXORUBICIN [Suspect]
     Active Substance: DOXORUBICIN
     Indication: Haemophagocytic lymphohistiocytosis
     Dosage: UNK
     Route: 042
  10. DOXORUBICIN [Suspect]
     Active Substance: DOXORUBICIN
     Indication: T-cell lymphoma
  11. CYCLOSPORINE [Suspect]
     Active Substance: CYCLOSPORINE
     Indication: Haemophagocytic lymphohistiocytosis
     Dosage: UNK
     Route: 048
  12. CYCLOSPORINE [Suspect]
     Active Substance: CYCLOSPORINE
     Indication: T-cell lymphoma
  13. GEMCITABINE [Suspect]
     Active Substance: GEMCITABINE
     Indication: Haemophagocytic lymphohistiocytosis
     Dosage: UNK
     Route: 042
  14. GEMCITABINE [Suspect]
     Active Substance: GEMCITABINE
     Indication: T-cell lymphoma
  15. CISPLATIN [Suspect]
     Active Substance: CISPLATIN
     Indication: Haemophagocytic lymphohistiocytosis
     Dosage: UNK
     Route: 042
  16. CISPLATIN [Suspect]
     Active Substance: CISPLATIN
     Indication: T-cell lymphoma
  17. CYCLOPHOSPHAMIDE [Suspect]
     Active Substance: CYCLOPHOSPHAMIDE
     Indication: Haemophagocytic lymphohistiocytosis
     Dosage: UNK
     Route: 042
  18. CYCLOPHOSPHAMIDE [Suspect]
     Active Substance: CYCLOPHOSPHAMIDE
     Indication: T-cell lymphoma
  19. VINCRISTINE [Suspect]
     Active Substance: VINCRISTINE
     Indication: Haemophagocytic lymphohistiocytosis
     Dosage: UNK
     Route: 042
  20. VINCRISTINE [Suspect]
     Active Substance: VINCRISTINE
     Indication: T-cell lymphoma
  21. PREDNISONE [Suspect]
     Active Substance: PREDNISONE
     Indication: Haemophagocytic lymphohistiocytosis
     Dosage: UNK
     Route: 065
  22. PREDNISONE [Suspect]
     Active Substance: PREDNISONE
     Indication: T-cell lymphoma
  23. PRALATREXATE [Suspect]
     Active Substance: PRALATREXATE
     Indication: Haemophagocytic lymphohistiocytosis
     Dosage: UNK
     Route: 042
  24. PRALATREXATE [Suspect]
     Active Substance: PRALATREXATE
     Indication: T-cell lymphoma
  25. ROMIDEPSIN [Suspect]
     Active Substance: ROMIDEPSIN
     Indication: Haemophagocytic lymphohistiocytosis
     Dosage: UNK
     Route: 042
  26. ROMIDEPSIN [Suspect]
     Active Substance: ROMIDEPSIN
     Indication: T-cell lymphoma

REACTIONS (6)
  - Cytopenia [Recovering/Resolving]
  - Malignant neoplasm progression [Not Recovered/Not Resolved]
  - T-cell lymphoma [Not Recovered/Not Resolved]
  - Haemophagocytic lymphohistiocytosis [Not Recovered/Not Resolved]
  - Serum ferritin increased [Not Recovered/Not Resolved]
  - Drug ineffective [Not Recovered/Not Resolved]

NARRATIVE: CASE EVENT DATE: 20230501
